FAERS Safety Report 9544086 (Version 3)
Quarter: 2013Q4

REPORT INFORMATION
  Report Type: Spontaneous
  Country: US (occurrence: US)
  Receive Date: 20130923
  Receipt Date: 20131008
  Transmission Date: 20140711
  Serious: Yes (Other)
  Sender: FDA-Public Use
  Company Number: US-ELI_LILLY_AND_COMPANY-US201307003876

PATIENT
  Age: 73 Year
  Sex: Female

DRUGS (4)
  1. GEMZAR [Suspect]
     Indication: MALIGNANT PERITONEAL NEOPLASM
     Dosage: 1000 MG/M2, DAY 1 AND 8
     Dates: start: 20130701
  2. GEMZAR [Suspect]
     Indication: OVARIAN CANCER
     Dosage: 800 MG/M2, UNK
     Dates: start: 201309
  3. GEMZAR [Suspect]
     Dosage: 660 MG/M2, UNK
  4. CARBOPLATIN [Suspect]
     Indication: MALIGNANT PERITONEAL NEOPLASM
     Dosage: UNK
     Dates: start: 20130708

REACTIONS (13)
  - Deafness [Unknown]
  - Constipation [Not Recovered/Not Resolved]
  - Abdominal pain [Not Recovered/Not Resolved]
  - Off label use [Unknown]
  - Platelet count decreased [Unknown]
  - Granulocyte count decreased [Unknown]
  - Anaemia [Unknown]
  - Haemoglobin decreased [Unknown]
  - White blood cell count abnormal [Unknown]
  - Tooth disorder [Unknown]
  - Hydronephrosis [Unknown]
  - Carbohydrate antigen 125 increased [Unknown]
  - Fatigue [Not Recovered/Not Resolved]
